FAERS Safety Report 17244427 (Version 7)
Quarter: 2021Q4

REPORT INFORMATION
  Report Type: Spontaneous
  Country: US (occurrence: US)
  Receive Date: 20200107
  Receipt Date: 20211207
  Transmission Date: 20220303
  Serious: Yes (Other)
  Sender: FDA-Public Use
  Company Number: US-GILEAD-2020-0445035

PATIENT
  Age: 45 Year
  Sex: Female
  Weight: 77.098 kg

DRUGS (96)
  1. ATRIPLA [Suspect]
     Active Substance: EFAVIRENZ\EMTRICITABINE\TENOFOVIR DISOPROXIL FUMARATE
     Indication: HIV infection
     Dosage: UNK
     Route: 048
     Dates: start: 2008, end: 201206
  2. ATRIPLA [Suspect]
     Active Substance: EFAVIRENZ\EMTRICITABINE\TENOFOVIR DISOPROXIL FUMARATE
     Dosage: UNK
     Route: 048
     Dates: start: 2008, end: 201006
  3. ATRIPLA [Suspect]
     Active Substance: EFAVIRENZ\EMTRICITABINE\TENOFOVIR DISOPROXIL FUMARATE
     Dosage: UNK
     Route: 048
     Dates: start: 20100923, end: 20110314
  4. ATRIPLA [Suspect]
     Active Substance: EFAVIRENZ\EMTRICITABINE\TENOFOVIR DISOPROXIL FUMARATE
     Dosage: UNK
     Route: 048
     Dates: start: 201104, end: 2016
  5. ATRIPLA [Suspect]
     Active Substance: EFAVIRENZ\EMTRICITABINE\TENOFOVIR DISOPROXIL FUMARATE
     Dosage: UNK
     Route: 065
     Dates: start: 20100801, end: 20140410
  6. ACETAMINOPHEN [Concomitant]
     Active Substance: ACETAMINOPHEN
  7. ACYCLOVIR [Concomitant]
     Active Substance: ACYCLOVIR
  8. AMOXICILLIN [Concomitant]
     Active Substance: AMOXICILLIN
  9. ASPIRIN [Concomitant]
     Active Substance: ASPIRIN
  10. ATORVASTATIN [Concomitant]
     Active Substance: ATORVASTATIN
  11. BACTRIM [Concomitant]
     Active Substance: SULFAMETHOXAZOLE\TRIMETHOPRIM
  12. CORTISONE [Concomitant]
     Active Substance: CORTISONE
  13. CRESTOR [Concomitant]
     Active Substance: ROSUVASTATIN CALCIUM
  14. FAMOTIDINE [Concomitant]
     Active Substance: FAMOTIDINE
  15. HEPARIN [Concomitant]
     Active Substance: HEPARIN SODIUM
  16. LASIX [Concomitant]
     Active Substance: FUROSEMIDE
  17. LEVOFLOXACIN [Concomitant]
     Active Substance: LEVOFLOXACIN
  18. OMEPRAZOLE [Concomitant]
     Active Substance: OMEPRAZOLE
  19. PANTOPRAZOLE [Concomitant]
     Active Substance: PANTOPRAZOLE
  20. PREDNISOLONE [Concomitant]
     Active Substance: PREDNISOLONE
  21. TRIAMCINOLONE [Concomitant]
     Active Substance: TRIAMCINOLONE
  22. VANCOMYCIN [Concomitant]
     Active Substance: VANCOMYCIN
  23. EDURANT [Concomitant]
     Active Substance: RILPIVIRINE HYDROCHLORIDE
  24. EPZICOM [Concomitant]
     Active Substance: ABACAVIR SULFATE\LAMIVUDINE
  25. INTELENCE [Concomitant]
     Active Substance: ETRAVIRINE
  26. ISENTRESS [Concomitant]
     Active Substance: RALTEGRAVIR POTASSIUM
  27. TIVICAY [Concomitant]
     Active Substance: DOLUTEGRAVIR SODIUM
  28. GENTAMICIN [Concomitant]
     Active Substance: GENTAMICIN
  29. MAALOX ANTACID [Concomitant]
     Active Substance: ALUMINUM HYDROXIDE\DIMETHICONE\MAGNESIUM HYDROXIDE
  30. ATIVAN [Concomitant]
     Active Substance: LORAZEPAM
  31. LEVOXYL [Concomitant]
     Active Substance: LEVOTHYROXINE SODIUM
  32. IBUPROFEN [Concomitant]
     Active Substance: IBUPROFEN
  33. OMEPRAZOLE [Concomitant]
     Active Substance: OMEPRAZOLE
  34. ZOLOFT [Concomitant]
     Active Substance: SERTRALINE HYDROCHLORIDE
  35. LISINOPRIL [Concomitant]
     Active Substance: LISINOPRIL
  36. AMLODIPINE BESYLATE [Concomitant]
     Active Substance: AMLODIPINE BESYLATE
  37. HYDRALAZINE [Concomitant]
     Active Substance: HYDRALAZINE HYDROCHLORIDE
  38. NIFEDIPINE [Concomitant]
     Active Substance: NIFEDIPINE
  39. METOPROLOL [Concomitant]
     Active Substance: METOPROLOL
  40. CARVEDILOL [Concomitant]
     Active Substance: CARVEDILOL
  41. CLONIDINE [Concomitant]
     Active Substance: CLONIDINE
  42. MAGNESIUM OXIDE [Concomitant]
     Active Substance: MAGNESIUM OXIDE
  43. AMLODIPINE [Concomitant]
     Active Substance: AMLODIPINE BESYLATE
  44. ACETAMINOPHEN\PROPOXYPHENE NAPSYLATE [Concomitant]
     Active Substance: ACETAMINOPHEN\PROPOXYPHENE NAPSYLATE
  45. ACETAMINOPHEN\HYDROCODONE [Concomitant]
     Active Substance: ACETAMINOPHEN\HYDROCODONE
  46. CLAVULANATE POTASSIUM [Concomitant]
     Active Substance: CLAVULANATE POTASSIUM
  47. CLINDAMYCIN HYDROCHLORIDE [Concomitant]
     Active Substance: CLINDAMYCIN HYDROCHLORIDE
     Indication: Bacterial infection
  48. AVELOX [Concomitant]
     Active Substance: MOXIFLOXACIN HYDROCHLORIDE
     Indication: Pneumonia
  49. SULFAMETHOXAZOLE AND TRIMETHOPRIM [Concomitant]
     Active Substance: SULFAMETHOXAZOLE\TRIMETHOPRIM
     Indication: Bacterial infection
  50. SULFAMETHOXAZOLE AND TRIMETHOPRIM [Concomitant]
     Active Substance: SULFAMETHOXAZOLE\TRIMETHOPRIM
     Indication: Pneumonia
  51. CIPROFLOXACIN [Concomitant]
     Active Substance: CIPROFLOXACIN
  52. TRAMADOL [Concomitant]
     Active Substance: TRAMADOL
     Indication: Pain
  53. BENZONATATE [Concomitant]
     Active Substance: BENZONATATE
     Indication: Pneumonia
  54. FERROUS SULFATE [Concomitant]
     Active Substance: FERROUS SULFATE
     Indication: Iron deficiency
  55. FERROUS SULFATE [Concomitant]
     Active Substance: FERROUS SULFATE
     Indication: Anaemia
  56. FLUCONAZOLE [Concomitant]
     Active Substance: FLUCONAZOLE
     Indication: Fungal infection
  57. METRONIDAZOLE [Concomitant]
     Active Substance: METRONIDAZOLE
     Indication: Bacterial infection
  58. ONDANSETRON [Concomitant]
     Active Substance: ONDANSETRON
     Indication: Vomiting
  59. PHENAZOPYRIDINE [Concomitant]
     Active Substance: PHENAZOPYRIDINE
  60. CALCITRIOL [Concomitant]
     Active Substance: CALCITRIOL
     Indication: Hypovitaminosis
  61. CETIRIZINE [Concomitant]
     Active Substance: CETIRIZINE HYDROCHLORIDE
     Indication: Hypersensitivity
  62. SODIUM POLYSTYRENE SULFONATE [Concomitant]
     Active Substance: SODIUM POLYSTYRENE SULFONATE
     Indication: Hyperkalaemia
  63. ASCORBIC ACID [Concomitant]
     Active Substance: ASCORBIC ACID
     Indication: Hypovitaminosis
  64. BANOPHEN [Concomitant]
     Active Substance: DIPHENHYDRAMINE HYDROCHLORIDE
     Indication: Hypersensitivity
  65. VITAMIN D2 [Concomitant]
     Active Substance: ERGOCALCIFEROL
  66. ALBUTEROL [Concomitant]
     Active Substance: ALBUTEROL
  67. VITAMIN D3 [Concomitant]
     Active Substance: CHOLECALCIFEROL
  68. ALLOPURINOL [Concomitant]
     Active Substance: ALLOPURINOL
     Indication: Gout
  69. PRENAPLUS [Concomitant]
  70. CEPHALEXIN [Concomitant]
     Active Substance: CEPHALEXIN
     Indication: Bacterial infection
  71. OXYCODONE [Concomitant]
     Active Substance: OXYCODONE
     Indication: Pain
  72. NITROFURANTOIN [Concomitant]
     Active Substance: NITROFURANTOIN
     Indication: Urinary tract infection
  73. CYCLOBENZAPRINE [Concomitant]
     Active Substance: CYCLOBENZAPRINE
     Indication: Back pain
  74. DIPHENHYDRAMINE [Concomitant]
     Active Substance: DIPHENHYDRAMINE
     Indication: Hypersensitivity
  75. GERI LANTA [Concomitant]
  76. FOLIC ACID [Concomitant]
     Active Substance: FOLIC ACID
  77. B-PLEX [VITAMIN B COMPLEX] [Concomitant]
     Indication: Vitamin B complex deficiency
  78. BUPROPION [Concomitant]
     Active Substance: BUPROPION
  79. DOK [Concomitant]
     Active Substance: DOCUSATE SODIUM
  80. DARAPRIM [Concomitant]
     Active Substance: PYRIMETHAMINE
  81. MEPRON [Concomitant]
     Active Substance: ATOVAQUONE
     Indication: Pneumonia
  82. SENNA PLUS [SENNA ALEXANDRINA] [Concomitant]
     Indication: Constipation
  83. OSELTAMIVIR [Concomitant]
     Active Substance: OSELTAMIVIR
     Indication: Pneumonia
  84. FLUOCINONIDE [Concomitant]
     Active Substance: FLUOCINONIDE
  85. AZITHROMYCIN [Concomitant]
     Active Substance: AZITHROMYCIN
     Indication: Urinary tract infection
  86. ZOVIRAX [Concomitant]
     Active Substance: ACYCLOVIR
     Indication: Oral herpes
  87. PROAIR HFA [Concomitant]
     Active Substance: ALBUTEROL SULFATE
     Indication: Chronic obstructive pulmonary disease
  88. SPIRIVA [Concomitant]
     Active Substance: TIOTROPIUM BROMIDE MONOHYDRATE
     Indication: Chronic obstructive pulmonary disease
  89. SPIRIVA [Concomitant]
     Active Substance: TIOTROPIUM BROMIDE MONOHYDRATE
     Indication: Asthma
  90. CYANOCOBALAMIN [Concomitant]
     Active Substance: CYANOCOBALAMIN
     Indication: Hypovitaminosis
  91. CHLORHEXIDIN [CHLORHEXIDINE GLUCONATE] [Concomitant]
     Indication: Gingivitis
  92. PAIN RELIEF NOS [Concomitant]
     Active Substance: CAMPHOR (SYNTHETIC)\LEVOMENTHOL\MENTHYL SALICYLATE OR CAMPHOR (SYNTHETIC)\MENTHOL\MENTHYL SALICYLATE
     Indication: Pain
  93. GABAPENTIN [Concomitant]
     Active Substance: GABAPENTIN
     Indication: Seizure
  94. GENTLE LAXATIVE [Concomitant]
     Active Substance: BISACODYL
  95. PEG 3350 + ELECTROLYTES [Concomitant]
  96. ARTHRITIS PAIN [Concomitant]
     Active Substance: ACETAMINOPHEN
     Indication: Pain

REACTIONS (28)
  - Chronic kidney disease [Not Recovered/Not Resolved]
  - End stage renal disease [Unknown]
  - Acute kidney injury [Unknown]
  - Tooth loss [Unknown]
  - Economic problem [Unknown]
  - Anhedonia [Unknown]
  - Emotional distress [Unknown]
  - Bone density decreased [Unknown]
  - Mobility decreased [Not Recovered/Not Resolved]
  - Tooth extraction [Unknown]
  - Asthenia [Not Recovered/Not Resolved]
  - Anxiety [Unknown]
  - Depression [Not Recovered/Not Resolved]
  - Pain [Unknown]
  - Acute kidney injury [Unknown]
  - Acute kidney injury [Unknown]
  - Acute kidney injury [Unknown]
  - Acute kidney injury [Unknown]
  - Acute kidney injury [Unknown]
  - Acute kidney injury [Unknown]
  - Acute kidney injury [Unknown]
  - Osteoporosis [Unknown]
  - Osteoarthritis [Unknown]
  - Tooth abscess [Unknown]
  - Bone cyst [Unknown]
  - Cerebral haemorrhage [Unknown]
  - Periorbital haematoma [Unknown]
  - Tooth infection [Unknown]

NARRATIVE: CASE EVENT DATE: 20101204
